FAERS Safety Report 6493294-2 (Version None)
Quarter: 2009Q4

REPORT INFORMATION
  Report Type: 
  Country: None (occurrence: None)
  Receive Date: 20091214
  Receipt Date: 20091204
  Transmission Date: 20100525
  Serious: No
  Sender: FDA-Public Use
  Company Number: FI-JNJFOC-20091201833

PATIENT
  Sex: Male

DRUGS (2)
  1. DURAGESIC-100 [Suspect]
     Indication: NEOPLASM MALIGNANT
     Route: 062
  2. DURAGESIC-100 [Suspect]
     Route: 062

REACTIONS (2)
  - ADVERSE DRUG REACTION [None]
  - WRONG TECHNIQUE IN DRUG USAGE PROCESS [None]
